FAERS Safety Report 16058503 (Version 2)
Quarter: 2019Q1

REPORT INFORMATION
  Report Type: Spontaneous
  Country: DK (occurrence: DE)
  Receive Date: 20190311
  Receipt Date: 20190327
  Transmission Date: 20190418
  Serious: Yes (Life-Threatening, Other)
  Sender: FDA-Public Use
  Company Number: DE-ASTRAZENECA-2019SE37732

PATIENT
  Sex: Female
  Weight: 59 kg

DRUGS (2)
  1. QUETIAPINE. [Suspect]
     Active Substance: QUETIAPINE
     Indication: RESTLESSNESS
     Dosage: 25.0MG UNKNOWN
     Route: 048
     Dates: start: 20190201, end: 20190220
  2. CITALOPRAM [Suspect]
     Active Substance: CITALOPRAM HYDROBROMIDE
     Indication: RESTLESSNESS
     Dosage: 10.0MG UNKNOWN
     Route: 048
     Dates: start: 20190201, end: 20190220

REACTIONS (5)
  - Hepatic failure [Recovered/Resolved with Sequelae]
  - Jaundice [Unknown]
  - Hepatitis [Recovered/Resolved with Sequelae]
  - Disturbance in attention [Unknown]
  - Renal failure [Unknown]

NARRATIVE: CASE EVENT DATE: 20190211
